FAERS Safety Report 9187666 (Version 1)
Quarter: 2013Q1

REPORT INFORMATION
  Report Type: Spontaneous
  Country: IT (occurrence: IT)
  Receive Date: 20130325
  Receipt Date: 20130325
  Transmission Date: 20140127
  Serious: Yes (Other)
  Sender: FDA-Public Use
  Company Number: IT-ELI_LILLY_AND_COMPANY-IT201303005078

PATIENT
  Age: 15 Year
  Sex: Male

DRUGS (3)
  1. ZYPREXA [Suspect]
     Indication: PSYCHOTIC DISORDER
     Dosage: 10 MG, QD
     Route: 048
     Dates: start: 20130125, end: 20130131
  2. KEPRA [Concomitant]
     Indication: ENCEPHALITIS
     Dosage: 2000 MG, UNKNOWN
     Route: 048
     Dates: start: 20130116, end: 20130313
  3. DELTACORTENE [Concomitant]
     Indication: ENCEPHALITIS
     Dosage: 150 MG, UNKNOWN
     Route: 048
     Dates: start: 20130123, end: 20130313

REACTIONS (3)
  - Gamma-glutamyltransferase increased [Recovered/Resolved]
  - Alanine aminotransferase increased [Recovered/Resolved]
  - Aspartate aminotransferase increased [Recovered/Resolved]
